FAERS Safety Report 10082392 (Version 1)
Quarter: 2014Q2

REPORT INFORMATION
  Report Type: Spontaneous
  Country: US (occurrence: None)
  Receive Date: 20140415
  Receipt Date: 20140415
  Transmission Date: 20141212
  Serious: Yes (Disabling)
  Sender: FDA-Public Use
  Company Number: None

PATIENT
  Age: 46 Year
  Sex: Male
  Weight: 77.11 kg

DRUGS (5)
  1. PROPECIA MERCK [Suspect]
     Indication: ALOPECIA
     Route: 048
     Dates: start: 20090830, end: 20110606
  2. CLOMID [Concomitant]
  3. AMBIENT [Concomitant]
  4. VITAMIN D [Concomitant]
  5. VITAMIN E [Concomitant]

REACTIONS (12)
  - Rhinitis [None]
  - Insomnia [None]
  - Depression [None]
  - Libido decreased [None]
  - Peyronie^s disease [None]
  - Erectile dysfunction [None]
  - Testicular pain [None]
  - Male genital atrophy [None]
  - Cognitive disorder [None]
  - Disturbance in attention [None]
  - Feeling abnormal [None]
  - Blood testosterone decreased [None]
